FAERS Safety Report 4824656-4 (Version None)
Quarter: 2005Q4

REPORT INFORMATION
  Report Type: 
  Country: None (occurrence: None)
  Receive Date: 20051110
  Receipt Date: 20051031
  Transmission Date: 20060501
  Serious: Yes (Hospitalization, Other)
  Sender: FDA-Public Use
  Company Number: US-JNJFOC-20051100391

PATIENT
  Sex: Male
  Weight: 73.94 kg

DRUGS (5)
  1. REMICADE [Suspect]
     Route: 042
  2. REMICADE [Suspect]
     Indication: COLITIS
     Route: 042
  3. INH [Suspect]
     Indication: TUBERCULIN TEST POSITIVE
  4. IMURAN [Concomitant]
  5. ASACOL [Concomitant]

REACTIONS (7)
  - ARTERIAL BYPASS OPERATION [None]
  - CEREBROVASCULAR ACCIDENT [None]
  - HEPATOTOXICITY [None]
  - LUNG DISORDER [None]
  - NIGHT SWEATS [None]
  - PYREXIA [None]
  - TUBERCULIN TEST POSITIVE [None]
